FAERS Safety Report 18178675 (Version 1)
Quarter: 2020Q3

REPORT INFORMATION
  Report Type: Spontaneous
  Country: ZA (occurrence: ZA)
  Receive Date: 20200821
  Receipt Date: 20200821
  Transmission Date: 20201103
  Serious: Yes (Hospitalization)
  Sender: FDA-Public Use
  Company Number: ZA-ASTELLAS-2020US028270

PATIENT
  Sex: Male

DRUGS (3)
  1. BETMIGA [Suspect]
     Active Substance: MIRABEGRON
     Indication: PRODUCT USED FOR UNKNOWN INDICATION
     Route: 048
  2. TREPILINE [AMITRIPTYLINE HYDROCHLORIDE] [Concomitant]
     Active Substance: AMITRIPTYLINE HYDROCHLORIDE
     Indication: STRESS
     Route: 048
  3. PANAMOR [DICLOFENAC SODIUM] [Concomitant]
     Indication: PAIN
     Route: 048

REACTIONS (1)
  - Renal disorder [Unknown]
